FAERS Safety Report 11829485 (Version 2)
Quarter: 2016Q4

REPORT INFORMATION
  Report Type: Spontaneous
  Country: US (occurrence: US)
  Receive Date: 20151211
  Receipt Date: 20161222
  Transmission Date: 20170206
  Serious: No
  Sender: FDA-Public Use
  Company Number: US-BAUSCH-BL-2015-015489

PATIENT
  Sex: Female

DRUGS (3)
  1. XENAZINE [Suspect]
     Active Substance: TETRABENAZINE
     Indication: HUNTINGTON^S DISEASE
     Route: 048
     Dates: start: 201312
  2. ELAVIL [Concomitant]
     Active Substance: AMITRIPTYLINE HYDROCHLORIDE
     Indication: DEPRESSION
     Route: 048
  3. PAXIL [Concomitant]
     Active Substance: PAROXETINE HYDROCHLORIDE
     Indication: DEPRESSION
     Route: 048

REACTIONS (6)
  - Anxiety [Unknown]
  - Fear [Unknown]
  - Sleep disorder [Not Recovered/Not Resolved]
  - Depression [Not Recovered/Not Resolved]
  - Panic attack [Unknown]
  - Choking [Recovering/Resolving]
